FAERS Safety Report 5267426-8 (Version None)
Quarter: 2007Q1

REPORT INFORMATION
  Report Type: 
  Country: None (occurrence: None)
  Receive Date: 20070316
  Receipt Date: 20070306
  Transmission Date: 20070707
  Serious: Yes (Death)
  Sender: FDA-Public Use
  Company Number: JP-ROCHE-485870

PATIENT
  Age: 65 Year
  Sex: Male

DRUGS (1)
  1. TAMIFLU [Suspect]
     Indication: INFLUENZA
     Route: 048
     Dates: start: 20070217, end: 20070219

REACTIONS (3)
  - ABNORMAL BEHAVIOUR [None]
  - COMPLETED SUICIDE [None]
  - PSYCHIATRIC SYMPTOM [None]
